FAERS Safety Report 5746861-5 (Version None)
Quarter: 2008Q2

REPORT INFORMATION
  Report Type: 
  Country: None (occurrence: None)
  Receive Date: 20080522
  Receipt Date: 20080513
  Transmission Date: 20081010
  Serious: Yes (Hospitalization, Other)
  Sender: FDA-Public Use
  Company Number: US-ABBOTT-08P-163-0451613-00

PATIENT
  Sex: Female
  Weight: 67.192 kg

DRUGS (16)
  1. HUMIRA [Suspect]
     Indication: RHEUMATOID ARTHRITIS
     Dates: start: 20060101
  2. HUMIRA [Suspect]
     Dosage: PRE-FILLED SYRINGE
     Dates: start: 20040101, end: 20060101
  3. METAMUCIL [Concomitant]
     Indication: GASTROINTESTINAL DISORDER
     Dosage: 1 CUP DAILY
     Route: 048
  4. MACROGOL [Concomitant]
     Indication: GASTROINTESTINAL DISORDER
     Route: 048
     Dates: start: 20070101
  5. MAGNESIUM HYDROXIDE TAB [Concomitant]
     Indication: GASTROINTESTINAL DISORDER
     Dosage: 1 TABLESPOON PER NIGHT
     Route: 048
     Dates: start: 20080101
  6. ZOLPIDEM TARTRATE [Concomitant]
     Indication: INSOMNIA
     Route: 048
     Dates: start: 20040101
  7. WARFARIN SODIUM [Concomitant]
     Indication: ANTICOAGULANT THERAPY
     Route: 048
     Dates: start: 20060101
  8. HYZAAR [Concomitant]
     Indication: HYPERTENSION
     Dosage: 50-12.5 MG
     Route: 048
     Dates: start: 19980101
  9. SIMVASTATIN [Concomitant]
     Indication: BLOOD CHOLESTEROL
     Route: 048
     Dates: start: 20070101
  10. BUPROPION SR [Concomitant]
     Indication: PAIN
     Route: 048
     Dates: start: 20040101
  11. ALLI [Concomitant]
     Indication: WEIGHT CONTROL
     Route: 048
     Dates: start: 20070101
  12. OMEPRAZOLE [Concomitant]
     Indication: GASTRIC DISORDER
     Route: 048
     Dates: start: 20060101
  13. CALCIUM WITH VITAMIN D AND ZINC [Concomitant]
     Indication: VITAMIN SUPPLEMENTATION
     Route: 048
     Dates: start: 19980101
  14. FISH OIL [Concomitant]
     Indication: VITAMIN SUPPLEMENTATION
     Route: 048
     Dates: start: 20060101
  15. ATORVASTATIN CALCIUM [Concomitant]
     Indication: BLOOD CHOLESTEROL
     Route: 048
     Dates: start: 20070101, end: 20070101
  16. ROSUVASTATIN [Concomitant]
     Indication: BLOOD CHOLESTEROL
     Route: 048
     Dates: start: 20070101, end: 20070101

REACTIONS (7)
  - HEADACHE [None]
  - INAPPROPRIATE SCHEDULE OF DRUG ADMINISTRATION [None]
  - INCORRECT ROUTE OF DRUG ADMINISTRATION [None]
  - INTESTINAL MALROTATION [None]
  - OEDEMA PERIPHERAL [None]
  - PAIN IN EXTREMITY [None]
  - RHEUMATOID ARTHRITIS [None]
